FAERS Safety Report 15763592 (Version 1)
Quarter: 2018Q4

REPORT INFORMATION
  Report Type: Spontaneous
  Country: CN (occurrence: CN)
  Receive Date: 20181227
  Receipt Date: 20181227
  Transmission Date: 20190205
  Serious: Yes (Other)
  Sender: FDA-Public Use
  Company Number: CN-ROCHE-2235607

PATIENT
  Age: 55 Year
  Sex: Male

DRUGS (26)
  1. OXALIPLATIN. [Concomitant]
     Active Substance: OXALIPLATIN
     Dosage: D1
     Route: 065
     Dates: start: 201604, end: 201607
  2. FLUOROURACIL. [Concomitant]
     Active Substance: FLUOROURACIL
     Dosage: Q21D
     Route: 065
     Dates: start: 201506, end: 201508
  3. CALCIUM FOLINATE [Concomitant]
     Active Substance: LEUCOVORIN CALCIUM
     Indication: ADENOCARCINOMA OF COLON
     Dosage: D1,Q14D ;ROUTE :CIV
     Route: 065
     Dates: start: 201509, end: 201602
  4. NIVOLUMAB [Concomitant]
     Active Substance: NIVOLUMAB
     Dosage: TOTAL 3 TIMES.Q14D ;2-3MG/KG,200/24 OMG
     Route: 065
     Dates: start: 20161220
  5. FLUOROURACIL. [Concomitant]
     Active Substance: FLUOROURACIL
     Dosage: 46H, Q14D ;CIV
     Route: 065
     Dates: start: 201509, end: 201602
  6. RALTITREXED [Concomitant]
     Active Substance: RALTITREXED
     Indication: ADENOCARCINOMA OF COLON
     Route: 065
     Dates: start: 201610, end: 201611
  7. LEUCOVORIN. [Concomitant]
     Active Substance: LEUCOVORIN
     Indication: ADENOCARCINOMA OF COLON
     Route: 065
     Dates: start: 201509, end: 201602
  8. AVASTIN [Suspect]
     Active Substance: BEVACIZUMAB
     Route: 065
     Dates: start: 20160302
  9. CALCIUM FOLINATE [Concomitant]
     Active Substance: LEUCOVORIN CALCIUM
     Route: 065
     Dates: start: 20170207, end: 20170302
  10. OXALIPLATIN. [Concomitant]
     Active Substance: OXALIPLATIN
     Indication: ADENOCARCINOMA OF COLON
     Dosage: 130 MG/M2,200 MG
     Route: 065
     Dates: start: 201411, end: 201505
  11. NIVOLUMAB [Concomitant]
     Active Substance: NIVOLUMAB
     Dosage: TOTAL 3 TIMES.Q14D ;2-3MG/KG,200/24 OMG
     Route: 065
     Dates: start: 20161206
  12. SUNITINIB [Concomitant]
     Active Substance: SUNITINIB
     Dosage: D20
     Route: 048
  13. AVASTIN [Suspect]
     Active Substance: BEVACIZUMAB
     Indication: METASTASES TO LIVER
     Dosage: Q21D
     Route: 065
     Dates: start: 201506, end: 201508
  14. NIVOLUMAB [Concomitant]
     Active Substance: NIVOLUMAB
     Indication: ADENOCARCINOMA OF COLON
     Dosage: TOTAL 3 TIMES.Q14D ;2-3MG/KG,200/24 OMG
     Route: 065
     Dates: start: 20161122
  15. OXALIPLATIN. [Concomitant]
     Active Substance: OXALIPLATIN
     Indication: METASTASES TO LIVER
     Route: 065
     Dates: start: 20160302
  16. OXALIPLATIN. [Concomitant]
     Active Substance: OXALIPLATIN
     Route: 065
     Dates: start: 20170207, end: 20170302
  17. FLUOROURACIL. [Concomitant]
     Active Substance: FLUOROURACIL
     Indication: ADENOCARCINOMA OF COLON
     Route: 065
     Dates: start: 201411, end: 201505
  18. FLUOROURACIL. [Concomitant]
     Active Substance: FLUOROURACIL
     Route: 065
     Dates: start: 20160302
  19. REGORAFENIB. [Concomitant]
     Active Substance: REGORAFENIB
     Indication: ADENOCARCINOMA OF COLON
     Dosage: D1-21,QD,Q28D ;ONGOING
     Route: 048
     Dates: start: 201706
  20. AVASTIN [Suspect]
     Active Substance: BEVACIZUMAB
     Indication: ADENOCARCINOMA OF COLON
     Route: 065
     Dates: start: 201411, end: 201505
  21. AVASTIN [Suspect]
     Active Substance: BEVACIZUMAB
     Indication: METASTASES TO LYMPH NODES
     Route: 065
     Dates: start: 201509, end: 201602
  22. FLUOROURACIL. [Concomitant]
     Active Substance: FLUOROURACIL
     Dosage: D1,Q14D ;CIV
     Route: 065
     Dates: start: 201509, end: 201602
  23. FLUOROURACIL. [Concomitant]
     Active Substance: FLUOROURACIL
     Route: 065
     Dates: start: 20170207, end: 20170302
  24. IRINOTECAN [Concomitant]
     Active Substance: IRINOTECAN
     Indication: ADENOCARCINOMA OF COLON
     Dosage: D1,Q14D ;ROUTE :CIV
     Route: 003
     Dates: start: 201509, end: 201602
  25. MITOMYCIN. [Concomitant]
     Active Substance: MITOMYCIN
     Route: 065
     Dates: start: 20160302
  26. CALCIUM FOLINATE [Concomitant]
     Active Substance: LEUCOVORIN CALCIUM
     Route: 065
     Dates: start: 20160302

REACTIONS (6)
  - Gastrointestinal disorder [Unknown]
  - Disease progression [Unknown]
  - Lung neoplasm [Unknown]
  - Bone marrow failure [Unknown]
  - Hepatic lesion [Unknown]
  - Oedema peripheral [Unknown]

NARRATIVE: CASE EVENT DATE: 20160909
